FAERS Safety Report 15713911 (Version 1)
Quarter: 2018Q4

REPORT INFORMATION
  Report Type: Spontaneous
  Country: US (occurrence: US)
  Receive Date: 20181212
  Receipt Date: 20181212
  Transmission Date: 20190205
  Serious: Yes (Other)
  Sender: FDA-Public Use
  Company Number: US-PFIZER INC-2018509057

PATIENT
  Age: 72 Year
  Sex: Female

DRUGS (1)
  1. DILANTIN [Suspect]
     Active Substance: PHENYTOIN
     Dosage: 100 MG, UNK

REACTIONS (5)
  - Myocardial infarction [Unknown]
  - Tremor [Unknown]
  - Nervousness [Unknown]
  - Product dose omission [Unknown]
  - Hypertension [Unknown]
